FAERS Safety Report 7987415-X (Version None)
Quarter: 2011Q4

REPORT INFORMATION
  Report Type: 
  Country: None (occurrence: None)
  Receive Date: 20111216
  Receipt Date: 20110407
  Transmission Date: 20120403
  Serious: No
  Sender: FDA-Public Use
  Company Number: US-BRISTOL-MYERS SQUIBB COMPANY-15659592

PATIENT
  Age: 58 Year
  Sex: Female
  Weight: 80 kg

DRUGS (8)
  1. BACLOFEN [Concomitant]
     Dosage: LAST WEEK STARTED
  2. LYRICA [Concomitant]
     Dosage: AT NIGHT TIME
  3. PROPRANOLOL [Concomitant]
     Indication: TREMOR
     Dosage: PRIMIDONE 250 MG  1DF:HALF TABS
  4. ESTRADIOL [Concomitant]
  5. PRIMIDONE [Concomitant]
     Dosage: HALF TABLET DAILY
  6. PAXIL [Suspect]
     Dosage: CURRENTLY WEANING OFF PAXIL IN THE FOLLOWING REGIMEN 40 MG, 20 MG, AND 10 MG
  7. ABILIFY [Suspect]
     Indication: DEPRESSION
  8. LORTAB [Concomitant]
     Dosage: ONE TO TWO TIMES PER DAY

REACTIONS (3)
  - IRRITABILITY [None]
  - LOGORRHOEA [None]
  - BLOOD GLUCOSE FLUCTUATION [None]
